FAERS Safety Report 4752132-6 (Version None)
Quarter: 2005Q3

REPORT INFORMATION
  Report Type: 
  Country: None (occurrence: None)
  Receive Date: 20050824
  Receipt Date: 20050824
  Transmission Date: 20060218
  Serious: Yes (Hospitalization)
  Sender: FDA-Public Use
  Company Number: None

PATIENT
  Age: 54 Year
  Sex: Male
  Weight: 149 kg

DRUGS (11)
  1. TOBRAMYCIN [Suspect]
     Indication: BACTERAEMIA
     Dosage: 600MG  QD  IV
     Route: 042
     Dates: start: 20050814, end: 20050816
  2. TOBRAMYCIN [Suspect]
     Indication: PNEUMONIA
     Dosage: 600MG  QD  IV
     Route: 042
     Dates: start: 20050814, end: 20050816
  3. TOBRAMYCIN [Suspect]
     Indication: URINARY TRACT INFECTION PSEUDOMONAL
     Dosage: 600MG  QD  IV
     Route: 042
     Dates: start: 20050814, end: 20050816
  4. TOBRAMYCIN [Suspect]
     Indication: LUNG INFECTION PSEUDOMONAL
     Dosage: 300MG BID INHAL
     Route: 055
     Dates: start: 20050816, end: 20050823
  5. CIPROFLOXACIN [Concomitant]
  6. VANCOMYCIN [Concomitant]
  7. HEPARIN [Concomitant]
  8. INSULIN [Concomitant]
  9. METOPROLOL [Concomitant]
  10. RANITIDINE HCL [Concomitant]
  11. TRAZODONE [Concomitant]

REACTIONS (4)
  - ANURIA [None]
  - DRUG TOXICITY [None]
  - RENAL FAILURE ACUTE [None]
  - RENAL TUBULAR DISORDER [None]
